FAERS Safety Report 16957655 (Version 4)
Quarter: 2019Q4

REPORT INFORMATION
  Report Type: Spontaneous
  Country: FR (occurrence: FR)
  Receive Date: 20191024
  Receipt Date: 20191220
  Transmission Date: 20200122
  Serious: Yes (Other)
  Sender: FDA-Public Use
  Company Number: FR-BAUSCH-BL-2019-058208

PATIENT
  Age: 73 Year
  Sex: Male

DRUGS (2)
  1. CARTEOL LP 2% COLLYRE A LIBERATION PROLONGEE EN RECIPIENT UNIDOSE [Suspect]
     Active Substance: CARTEOLOL HYDROCHLORIDE
     Indication: GLAUCOMA
     Dosage: PRESCRIBED ABOUT 2 YEARS BEFORE OF THIS REPORT
     Route: 047
     Dates: start: 2017, end: 2019
  2. CARTEOL LP 2% COLLYRE A LIBERATION PROLONGEE EN RECIPIENT UNIDOSE [Suspect]
     Active Substance: CARTEOLOL HYDROCHLORIDE
     Dosage: 1 DROP IN THE MORNING IN EACH EYE (SINGLE DOSE UNIT)
     Route: 047
     Dates: start: 2019

REACTIONS (6)
  - Pancreatic injury [Not Recovered/Not Resolved]
  - Weight decreased [Recovered/Resolved]
  - Decreased appetite [Recovered/Resolved]
  - Nausea [Recovered/Resolved]
  - Pharyngeal swelling [Recovering/Resolving]
  - Swollen tongue [Recovering/Resolving]
